FAERS Safety Report 4384636-2 (Version None)
Quarter: 2004Q2

REPORT INFORMATION
  Report Type: 
  Country: None (occurrence: None)
  Receive Date: 20040625
  Receipt Date: 20031117
  Transmission Date: 20050107
  Serious: No
  Sender: FDA-Public Use
  Company Number: US-BRISTOL-MYERS SQUIBB COMPANY-12437851

PATIENT
  Age: 71 Year
  Sex: Female
  Weight: 57 kg

DRUGS (4)
  1. SINEMET CR [Suspect]
     Indication: PARKINSON'S DISEASE
     Dosage: DOSAGE: 50MG/200MG
     Route: 048
  2. AMBIEN [Concomitant]
  3. REMERON [Concomitant]
  4. MULTI-VITAMIN [Concomitant]

REACTIONS (1)
  - DRUG INEFFECTIVE [None]
